FAERS Safety Report 4886914-7 (Version None)
Quarter: 2006Q1

REPORT INFORMATION
  Report Type: 
  Country: None (occurrence: None)
  Receive Date: 20060119
  Receipt Date: 20060110
  Transmission Date: 20060701
  Serious: Yes (Hospitalization)
  Sender: FDA-Public Use
  Company Number: GBWYE201902DEC05

PATIENT
  Age: 43 Year
  Sex: Female

DRUGS (1)
  1. EFFEXOR XR [Suspect]
     Dosage: SEE IMAGE
     Route: 048

REACTIONS (1)
  - MYOCARDIAL INFARCTION [None]
